FAERS Safety Report 9342839 (Version 5)
Quarter: 2013Q4

REPORT INFORMATION
  Report Type: Spontaneous
  Country: US (occurrence: US)
  Receive Date: 20130611
  Receipt Date: 20131007
  Transmission Date: 20140711
  Serious: Yes (Hospitalization)
  Sender: FDA-Public Use
  Company Number: US-GLAXOSMITHKLINE-A1025716A

PATIENT
  Age: 66 Year
  Sex: Female

DRUGS (2)
  1. LOVAZA [Suspect]
     Indication: BLOOD CHOLESTEROL INCREASED
     Dosage: 1G PER DAY
     Route: 048
     Dates: start: 2009
  2. NO CONCURRENT MEDICATION [Concomitant]

REACTIONS (12)
  - Cerebrovascular accident [Recovering/Resolving]
  - Low density lipoprotein increased [Recovering/Resolving]
  - Rehabilitation therapy [Unknown]
  - Injury [Unknown]
  - Eye injury [Unknown]
  - Musculoskeletal stiffness [Unknown]
  - Muscle spasms [Unknown]
  - Pain in extremity [Unknown]
  - Muscular weakness [Not Recovered/Not Resolved]
  - Visual acuity reduced [Unknown]
  - Dysarthria [Not Recovered/Not Resolved]
  - Nervousness [Not Recovered/Not Resolved]
